FAERS Safety Report 8158720-1 (Version None)
Quarter: 2012Q1

REPORT INFORMATION
  Report Type: 
  Country: None (occurrence: None)
  Receive Date: 20120223
  Receipt Date: 20120214
  Transmission Date: 20120608
  Serious: Yes (Other)
  Sender: FDA-Public Use
  Company Number: CA-JNJFOC-20120207988

PATIENT
  Sex: Male
  Weight: 72.7 kg

DRUGS (6)
  1. PANTOPRAZOLE SODIUM [Concomitant]
     Route: 065
  2. TYLENOL W/ CODEINE NO. 3 [Concomitant]
     Route: 065
  3. MESALAMINE [Concomitant]
     Route: 065
  4. METOPROLOL [Concomitant]
     Route: 065
  5. REMICADE [Suspect]
     Indication: COLITIS ULCERATIVE
     Route: 042
     Dates: start: 20080922
  6. SYMBICORT [Concomitant]
     Route: 065

REACTIONS (2)
  - ABDOMINAL PAIN LOWER [None]
  - THROMBOSIS [None]
